FAERS Safety Report 20443070 (Version 1)
Quarter: 2022Q1

REPORT INFORMATION
  Report Type: Spontaneous
  Country: CZ (occurrence: CZ)
  Receive Date: 20220208
  Receipt Date: 20220208
  Transmission Date: 20220423
  Serious: Yes (Life-Threatening, Hospitalization, Other)
  Sender: FDA-Public Use
  Company Number: None

PATIENT
  Age: 64 Year
  Weight: 87 kg

DRUGS (15)
  1. OXALIPLATIN [Suspect]
     Active Substance: OXALIPLATIN
     Indication: Adenocarcinoma of colon
     Dosage: OXALIPLATIN ADMINISTERED AT AN UNREDUCED DOSE OF 85MG/M2
     Route: 042
     Dates: start: 20210914, end: 20211207
  2. ASPIRIN [Concomitant]
     Active Substance: ASPIRIN
     Dosage: CHRONIC MEDICATION 0-1-0
     Route: 048
  3. METOPROLOL [Concomitant]
     Active Substance: METOPROLOL
     Dosage: STRENGTH:200MG,CHRONIC MEDICATION 1 / 2-0-0
     Route: 048
  4. LEUCOVORIN CALCIUM [Concomitant]
     Active Substance: LEUCOVORIN CALCIUM
     Indication: Adenocarcinoma of colon
     Dosage: PART OF CHEMOTHERAPY, ADMINISTERED 1X/14 DAYS ABSOLUTE DOSE APPROX. 620MG
     Route: 042
     Dates: start: 20210914, end: 20211123
  5. CONTROLOC [Concomitant]
     Active Substance: PANTOPRAZOLE SODIUM
     Dosage: STRENGTH:40MG, PREMEDICATION BEFORE CHEMOTHERAPY, ADMINISTERED 1X/14 DAYS, TOTAL 7 TIMES
     Route: 042
     Dates: start: 20210914, end: 20211207
  6. BISULEPIN [Concomitant]
     Active Substance: BISULEPIN
     Indication: Allergy prophylaxis
     Dosage: PREMEDICATION BEFORE CHEMOTHERAPY, ADMINISTERED 1X/14 DAYS, TOTAL 7 TIMES
     Route: 030
     Dates: start: 20210914, end: 20211207
  7. FLUOROURACIL [Concomitant]
     Active Substance: FLUOROURACIL
     Indication: Colon cancer metastatic
     Dosage: PART OF CHEMOTHERAPY, ADMINISTERED 1X/14 DAYS ABS. DOSE APPROX. 4350MG
     Route: 042
     Dates: start: 20210914, end: 20211123
  8. GRANISETRON [Concomitant]
     Active Substance: GRANISETRON
     Indication: Premedication
     Dosage: PREMEDICATION BEFORE CHEMOTHERAPY, ADMINISTERED 1X/14 DAYS, TOTAL 7 TIMES
     Route: 042
     Dates: start: 20210914, end: 20211207
  9. HUMALOG [Concomitant]
     Active Substance: INSULIN LISPRO
     Dosage: 18-18-18 UNITS BEFORE EATING
     Route: 058
  10. INSULIN GLARGINE [Concomitant]
     Active Substance: INSULIN GLARGINE
     Dosage: CHRONIC MEDICATION 40IU S.C. IN THE EVENING
     Route: 058
  11. NITRENDIPINE [Concomitant]
     Active Substance: NITRENDIPINE
     Dosage: STRENGTH:20MG,CHRONIC MEDICATION 1-0-0
     Route: 048
  12. Purinol [Concomitant]
     Dosage: STRENGTH:100MG, CHRONIC MEDICATION 0-1-0
     Route: 048
  13. ROSUVASTATIN CALCIUM [Concomitant]
     Active Substance: ROSUVASTATIN CALCIUM
     Dosage: CHRONIC MEDICATION 1-0-0
     Route: 048
  14. TELMISARTAN [Concomitant]
     Active Substance: TELMISARTAN
     Dosage: STRENGTH:80MG, CHRONIC MEDICATION1-0-0
     Route: 048
  15. VECTIBIX [Concomitant]
     Active Substance: PANITUMUMAB
     Indication: Colon cancer metastatic
     Dosage: STRENGTH:100MG, PART OF CHT, ADMINISTERED 1X / 14 DAYS APPROX
     Route: 042
     Dates: start: 20210914, end: 20211208

REACTIONS (4)
  - Dyspnoea [Recovered/Resolved]
  - Orthopnoea [Recovered/Resolved]
  - Urinary incontinence [Recovered/Resolved]
  - Anaphylactic reaction [Recovered/Resolved]

NARRATIVE: CASE EVENT DATE: 20211207
